FAERS Safety Report 7297923-5 (Version None)
Quarter: 2011Q1

REPORT INFORMATION
  Report Type: 
  Country: None (occurrence: None)
  Receive Date: 20110217
  Receipt Date: 20110214
  Transmission Date: 20110831
  Serious: Yes (Hospitalization)
  Sender: FDA-Public Use
  Company Number: US-JNJFOC-20110204769

PATIENT
  Sex: Male
  Weight: 72.58 kg

DRUGS (4)
  1. FENTANYL [Concomitant]
     Indication: PAIN
     Route: 048
  2. FENTANYL-100 [Suspect]
     Indication: BACK PAIN
     Route: 062
  3. FENTANYL-100 [Suspect]
     Route: 062
  4. HYDROCODONE [Concomitant]
     Indication: PAIN
     Route: 048

REACTIONS (2)
  - INTERVERTEBRAL DISC DEGENERATION [None]
  - APPLICATION SITE IRRITATION [None]
